FAERS Safety Report 7892180-0 (Version None)
Quarter: 2011Q4

REPORT INFORMATION
  Report Type: 
  Country: None (occurrence: None)
  Receive Date: 20111104
  Receipt Date: 20111026
  Transmission Date: 20120403
  Serious: Yes (Other)
  Sender: FDA-Public Use
  Company Number: JP-ASTRAZENECA-2010SE30162

PATIENT
  Age: 43 Year
  Sex: Female
  Weight: 100 kg

DRUGS (18)
  1. SYMBICORT [Suspect]
     Dosage: 1 DF TWO TIMES A DAY
     Route: 055
     Dates: start: 20100524, end: 20100614
  2. HIRUDOID [Concomitant]
     Indication: RASH
     Route: 062
     Dates: start: 20100603
  3. OLOPATADINE HCL [Concomitant]
     Indication: RHINITIS ALLERGIC
     Route: 048
  4. ALENDRONATE SODIUM [Concomitant]
     Route: 048
  5. ROHYPNOL [Concomitant]
     Indication: INSOMNIA
     Route: 048
  6. MEPTIN AIR [Concomitant]
     Indication: ASTHMA
     Route: 055
     Dates: start: 20070205
  7. ALVESCO [Concomitant]
     Indication: ASTHMA
     Route: 055
     Dates: start: 20100104, end: 20100614
  8. ONON [Concomitant]
     Indication: ASTHMA
     Route: 048
  9. DEPAS [Concomitant]
     Indication: INSOMNIA
     Route: 048
  10. LOXONIN [Concomitant]
     Indication: PERIARTHRITIS
     Route: 048
     Dates: start: 20100422
  11. LOCOID [Concomitant]
     Indication: RASH
     Dosage: TWO TIMES A DAY
     Route: 062
     Dates: start: 20100603
  12. DEPAS [Concomitant]
     Indication: ANXIETY
     Route: 048
  13. THEO-DUR [Concomitant]
     Indication: ASTHMA
     Route: 048
  14. LITHIUM CARBONATE [Concomitant]
     Indication: AFFECTIVE DISORDER
     Route: 048
  15. MUCODYNE [Concomitant]
     Indication: ASTHMA
     Route: 048
  16. SYMBICORT [Suspect]
     Indication: ASTHMA
     Dosage: 2 DF TWO TIMES A DAY
     Route: 055
     Dates: start: 20100426, end: 20100523
  17. FAMOTIDINE [Concomitant]
     Indication: PROPHYLAXIS AGAINST GASTROINTESTINAL ULCER
     Route: 048
  18. LENDORMIN [Concomitant]
     Indication: INSOMNIA
     Route: 048

REACTIONS (2)
  - OEDEMA PERIPHERAL [None]
  - ECZEMA [None]
